FAERS Safety Report 6845094-9 (Version None)
Quarter: 2010Q3

REPORT INFORMATION
  Report Type: 
  Country: None (occurrence: None)
  Receive Date: 20100715
  Receipt Date: 20070814
  Transmission Date: 20110219
  Serious: No
  Sender: FDA-Public Use
  Company Number: US-PFIZER INC-2007068153

PATIENT
  Sex: Male
  Weight: 81.8 kg

DRUGS (5)
  1. CHANTIX [Suspect]
     Indication: SMOKING CESSATION THERAPY
     Dates: start: 20070701
  2. CELEBREX [Concomitant]
     Route: 048
  3. TRAMADOL HCL [Concomitant]
     Dosage: AS NEEDED
  4. FLEXERIL [Concomitant]
     Indication: MUSCLE SPASMS
     Dosage: 10 MG AS NEEDED
  5. VITAMINS [Concomitant]

REACTIONS (1)
  - DYSGEUSIA [None]
